FAERS Safety Report 7630166-1 (Version None)
Quarter: 2011Q3

REPORT INFORMATION
  Report Type: 
  Country: None (occurrence: None)
  Receive Date: 20110722
  Receipt Date: 20110715
  Transmission Date: 20111222
  Serious: Yes (Other)
  Sender: FDA-Public Use
  Company Number: US-US-EMD SERONO, INC.-233615J09USA

PATIENT
  Sex: Female

DRUGS (2)
  1. REBIF [Suspect]
     Indication: MULTIPLE SCLEROSIS
     Route: 058
     Dates: start: 20081121, end: 20090101
  2. REBIF [Suspect]
     Dates: end: 20100501

REACTIONS (4)
  - ANEURYSM [None]
  - TORTICOLLIS [None]
  - MULTIPLE SCLEROSIS [None]
  - FEELING ABNORMAL [None]
